FAERS Safety Report 4637263-3 (Version None)
Quarter: 2005Q2

REPORT INFORMATION
  Report Type: 
  Country: None (occurrence: None)
  Receive Date: 20050418
  Receipt Date: 20050406
  Transmission Date: 20051028
  Serious: Yes (Hospitalization, Other)
  Sender: FDA-Public Use
  Company Number: GB-JNJFOC-20050401766

PATIENT
  Sex: Female
  Weight: 58 kg

DRUGS (10)
  1. REMICADE [Suspect]
     Indication: RHEUMATOID ARTHRITIS
     Route: 042
  2. METHOTREXATE [Concomitant]
  3. FOLIC ACID [Concomitant]
  4. PREDNISOLONE [Concomitant]
  5. CELEBREX [Concomitant]
  6. TRIDESTRA [Concomitant]
  7. TRIDESTRA [Concomitant]
  8. FERROUS SULFATE TAB [Concomitant]
  9. CALCUIM [Concomitant]
  10. VITAMIN D [Concomitant]

REACTIONS (1)
  - BONE CYST EXCISION [None]
